FAERS Safety Report 6016855-3 (Version None)
Quarter: 2008Q4

REPORT INFORMATION
  Report Type: 
  Country: None (occurrence: None)
  Receive Date: 20081219
  Receipt Date: 20081211
  Transmission Date: 20090506
  Serious: Yes (Other)
  Sender: FDA-Public Use
  Company Number: THQ2008A03008

PATIENT
  Age: 70 Year
  Sex: Male

DRUGS (4)
  1. ACTOS [Suspect]
     Indication: DIABETES MELLITUS
     Dosage: 30 MG (30 MG, 1 IN 1 D)
     Route: 048
  2. DIAMICRON MR (GLICLAZIDE) [Concomitant]
  3. METFORMIN HCL [Concomitant]
  4. LIPITOR [Concomitant]

REACTIONS (1)
  - TENDON RUPTURE [None]
